FAERS Safety Report 4385895-2 (Version None)
Quarter: 2004Q2

REPORT INFORMATION
  Report Type: 
  Country: None (occurrence: None)
  Receive Date: 20040628
  Receipt Date: 20040615
  Transmission Date: 20050107
  Serious: Yes (Disabling)
  Sender: FDA-Public Use
  Company Number: GB-GLAXOSMITHKLINE-B0335839A

PATIENT
  Age: 65 Year
  Sex: Female
  Weight: 81.2 kg

DRUGS (6)
  1. AVANDIA [Suspect]
     Indication: DIABETES MELLITUS
     Route: 048
     Dates: start: 20031101, end: 20040301
  2. ATORVASTATIN CALCIUM [Concomitant]
     Dosage: 10MG PER DAY
     Route: 048
     Dates: start: 20031001, end: 20040301
  3. GLICLAZIDE [Concomitant]
     Dosage: 320MG PER DAY
     Route: 048
     Dates: start: 20000101
  4. METFORMIN HCL [Concomitant]
     Dosage: 1G PER DAY
     Route: 065
     Dates: start: 20000101
  5. THYROXINE [Concomitant]
     Dosage: 50MCG PER DAY
     Route: 065
     Dates: start: 19980101
  6. BENDROFLUAZIDE [Concomitant]
     Dosage: 2.5MG PER DAY
     Route: 065
     Dates: start: 19180101

REACTIONS (1)
  - ALOPECIA [None]
